FAERS Safety Report 10984443 (Version 2)
Quarter: 2015Q2

REPORT INFORMATION
  Report Type: Spontaneous
  Country: CA (occurrence: CA)
  Receive Date: 20150403
  Receipt Date: 20150416
  Transmission Date: 20150821
  Serious: Yes (Death, Hospitalization)
  Sender: FDA-Public Use
  Company Number: CA-ACTELION-A-US2015-115469

PATIENT
  Age: 67 Year
  Sex: Male

DRUGS (15)
  1. SYNTHROID [Concomitant]
     Active Substance: LEVOTHYROXINE SODIUM
  2. VITAMIN D [Concomitant]
     Active Substance: CHOLECALCIFEROL
  3. OMEGA 3 [Concomitant]
     Active Substance: OMEGA-3 FATTY ACIDS
  4. CARIPUL [Suspect]
     Active Substance: EPOPROSTENOL
     Indication: PULMONARY ARTERIAL HYPERTENSION
     Dosage: UNK
     Route: 042
     Dates: start: 20141016
  5. PREDNISONE. [Concomitant]
     Active Substance: PREDNISONE
  6. VOLIBRIS [Concomitant]
     Active Substance: AMBRISENTAN
  7. SYMBICORT [Concomitant]
     Active Substance: BUDESONIDE\FORMOTEROL FUMARATE DIHYDRATE
  8. NOVOLIN [Concomitant]
     Active Substance: INSULIN HUMAN
  9. PANTOPRAZOLE [Concomitant]
     Active Substance: PANTOPRAZOLE SODIUM
  10. ADCIRCA [Concomitant]
     Active Substance: TADALAFIL
  11. CALCIUM [Concomitant]
     Active Substance: CALCIUM
  12. ARANESP [Concomitant]
     Active Substance: DARBEPOETIN ALFA
  13. FUROSEMIDE. [Concomitant]
     Active Substance: FUROSEMIDE
  14. MULTIVITAMIN [Concomitant]
     Active Substance: VITAMINS
  15. SPIRIVA [Concomitant]
     Active Substance: TIOTROPIUM BROMIDE MONOHYDRATE

REACTIONS (5)
  - Death [Fatal]
  - Cardiac disorder [Unknown]
  - Renal disorder [Unknown]
  - Dyspnoea [Unknown]
  - Pleural effusion [Unknown]

NARRATIVE: CASE EVENT DATE: 201503
